FAERS Safety Report 5562497-3 (Version None)
Quarter: 2007Q4

REPORT INFORMATION
  Report Type: 
  Country: None (occurrence: None)
  Receive Date: 20071216
  Receipt Date: 20071211
  Transmission Date: 20080405
  Serious: Yes (Death)
  Sender: FDA-Public Use
  Company Number: US-ABBOTT-07P-163-0428096-00

PATIENT
  Sex: Male
  Weight: 68.1 kg

DRUGS (3)
  1. HUMIRA [Suspect]
     Indication: CROHN'S DISEASE
     Dosage: LOADING DOSE
     Route: 058
     Dates: start: 20070816, end: 20070816
  2. HUMIRA [Suspect]
     Route: 058
     Dates: start: 20070830, end: 20070830
  3. PREDNISONE [Concomitant]
     Indication: CROHN'S DISEASE
     Dosage: VARIABLE, BUT MAINTENANCE DOSE 10MG
     Route: 048
     Dates: start: 19800101, end: 20070927

REACTIONS (5)
  - ACUTE RESPIRATORY DISTRESS SYNDROME [None]
  - ACUTE RESPIRATORY FAILURE [None]
  - HYPOXIA [None]
  - PNEUMONIA [None]
  - PYREXIA [None]
